FAERS Safety Report 24415907 (Version 1)
Quarter: 2024Q4

REPORT INFORMATION
  Report Type: Report from Study
  Country: JP (occurrence: JP)
  Receive Date: 20241009
  Receipt Date: 20241009
  Transmission Date: 20250114
  Serious: Yes (Other)
  Sender: PFIZER
  Company Number: JP-PFIZER INC-PV202400129236

PATIENT
  Age: 10 Year
  Sex: Female

DRUGS (1)
  1. SIROLIMUS [Suspect]
     Active Substance: SIROLIMUS
     Indication: PIK3CA related overgrowth spectrum
     Dosage: 2 MG
     Route: 065
     Dates: start: 20200210

REACTIONS (4)
  - Pneumonia mycoplasmal [Recovered/Resolved]
  - Cystitis [Recovered/Resolved]
  - Cellulitis [Recovered/Resolved]
  - Stomatitis [Recovered/Resolved]

NARRATIVE: CASE EVENT DATE: 20200330
